FAERS Safety Report 5164624-9 (Version None)
Quarter: 2006Q4

REPORT INFORMATION
  Report Type: 
  Country: None (occurrence: None)
  Receive Date: 20061205
  Receipt Date: 20061121
  Transmission Date: 20070319
  Serious: Yes (Hospitalization)
  Sender: FDA-Public Use
  Company Number: US-JNJFOC-20060601427

PATIENT
  Sex: Female

DRUGS (1)
  1. ORTHO EVRA [Suspect]
     Indication: CONTRACEPTION
     Route: 062
     Dates: start: 20040101, end: 20041001

REACTIONS (5)
  - DEEP VEIN THROMBOSIS [None]
  - HYPOXIA [None]
  - INJURY [None]
  - PULMONARY EMBOLISM [None]
  - THROMBOPHLEBITIS [None]
